FAERS Safety Report 6998833-0 (Version None)
Quarter: 2010Q3

REPORT INFORMATION
  Report Type: 
  Country: None (occurrence: None)
  Receive Date: 20100920
  Receipt Date: 20100203
  Transmission Date: 20110219
  Serious: Yes (Hospitalization)
  Sender: FDA-Public Use
  Company Number: US-ASTRAZENECA-2009SE30269

PATIENT
  Age: 36 Year
  Sex: Male
  Weight: 89.4 kg

DRUGS (3)
  1. SEROQUEL [Suspect]
     Indication: POST-TRAUMATIC STRESS DISORDER
     Dosage: 100 MG-900 MG
     Route: 048
     Dates: start: 20000101
  2. ZYPREXA [Concomitant]
     Dates: start: 20060101
  3. DEPAKOTE [Concomitant]
     Dates: start: 20040101, end: 20060101

REACTIONS (6)
  - DIABETES MELLITUS [None]
  - FIBROMYALGIA [None]
  - OBESITY [None]
  - PANCREATITIS [None]
  - RENAL DISORDER [None]
  - TYPE 1 DIABETES MELLITUS [None]
